FAERS Safety Report 20906194 (Version 2)
Quarter: 2022Q2

REPORT INFORMATION
  Report Type: Report from Study
  Country: GR (occurrence: None)
  Receive Date: 20220602
  Receipt Date: 20220627
  Transmission Date: 20220720
  Serious: Yes (Death, Life-Threatening, Hospitalization, Disabling)
  Sender: FDA-Public Use
  Company Number: GR-Merck Healthcare KGaA-9325917

PATIENT
  Sex: Male

DRUGS (4)
  1. BAVENCIO [Suspect]
     Active Substance: AVELUMAB
     Indication: Renal cell carcinoma
     Dates: start: 20210820, end: 20210820
  2. BAVENCIO [Suspect]
     Active Substance: AVELUMAB
     Dates: start: 20210903, end: 20210903
  3. BAVENCIO [Suspect]
     Active Substance: AVELUMAB
     Dates: start: 20210916, end: 20210916
  4. INLYTA [Suspect]
     Active Substance: AXITINIB
     Indication: Renal cell carcinoma

REACTIONS (2)
  - Cardio-respiratory arrest [Fatal]
  - Fatigue [Not Recovered/Not Resolved]

NARRATIVE: CASE EVENT DATE: 20210903
